FAERS Safety Report 5751917-7 (Version None)
Quarter: 2008Q2

REPORT INFORMATION
  Report Type: 
  Country: None (occurrence: None)
  Receive Date: 20080529
  Receipt Date: 20080527
  Transmission Date: 20081010
  Serious: Yes (Hospitalization)
  Sender: FDA-Public Use
  Company Number: US-BAYER-200812946NA

PATIENT
  Age: 22 Year
  Sex: Female
  Weight: 61 kg

DRUGS (2)
  1. YAZ [Suspect]
     Indication: CONTRACEPTION
     Route: 048
     Dates: start: 20080129, end: 20080131
  2. IRON SUPPLEMENT [Concomitant]
     Indication: ANAEMIA
     Route: 048
     Dates: start: 20070801

REACTIONS (8)
  - ABDOMINAL PAIN LOWER [None]
  - ASTHENIA [None]
  - DIZZINESS [None]
  - HAEMATOCRIT DECREASED [None]
  - HAEMOGLOBIN DECREASED [None]
  - MENORRHAGIA [None]
  - VAGINAL HAEMORRHAGE [None]
  - VOMITING [None]
